FAERS Safety Report 20012203 (Version 1)
Quarter: 2021Q4

REPORT INFORMATION
  Report Type: Spontaneous
  Country: US (occurrence: US)
  Receive Date: 20211028
  Receipt Date: 20211028
  Transmission Date: 20220303
  Serious: Yes (Other)
  Sender: FDA-Public Use
  Company Number: US-SA-SAC20211025000124

PATIENT
  Age: 53 Year
  Sex: Female

DRUGS (2)
  1. AUBAGIO [Suspect]
     Active Substance: TERIFLUNOMIDE
     Indication: Multiple sclerosis
     Dosage: 14 MG QD
     Route: 048
     Dates: start: 20210316
  2. OCREVUS [Concomitant]
     Active Substance: OCRELIZUMAB
     Dates: start: 20211016

REACTIONS (5)
  - Multiple sclerosis [Unknown]
  - Visual impairment [Unknown]
  - Balance disorder [Unknown]
  - Feeling abnormal [Unknown]
  - Drug ineffective [Unknown]

NARRATIVE: CASE EVENT DATE: 20210101
